FAERS Safety Report 5621445-8 (Version None)
Quarter: 2008Q1

REPORT INFORMATION
  Report Type: 
  Country: None (occurrence: None)
  Receive Date: 20080211
  Receipt Date: 20080102
  Transmission Date: 20080703
  Serious: No
  Sender: FDA-Public Use
  Company Number: US-BAYER-200810159NA

PATIENT
  Age: 44 Year
  Sex: Female
  Weight: 56 kg

DRUGS (1)
  1. YAZ [Suspect]
     Indication: DYSMENORRHOEA
     Route: 048
     Dates: start: 20071201, end: 20071229

REACTIONS (1)
  - FATIGUE [None]
